FAERS Safety Report 6436591-9 (Version None)
Quarter: 2009Q4

REPORT INFORMATION
  Report Type: 
  Country: None (occurrence: None)
  Receive Date: 20091111
  Receipt Date: 20091030
  Transmission Date: 20100525
  Serious: Yes (Other)
  Sender: FDA-Public Use
  Company Number: US-PFIZER INC-2009269342

PATIENT
  Sex: Male
  Weight: 192.77 kg

DRUGS (4)
  1. LYRICA [Suspect]
     Indication: BACK PAIN
     Dosage: 100 MG EVERY 6 HOURS
     Route: 048
     Dates: end: 20090101
  2. AMBIEN [Concomitant]
     Dosage: FREQUENCY: AT BEDTIME,
  3. PAXIL [Concomitant]
     Dosage: ONCE DAILY
  4. TRAZODONE [Concomitant]
     Dosage: FREQUENCY: AT BEDTIME,

REACTIONS (1)
  - SKIN ODOUR ABNORMAL [None]
